FAERS Safety Report 25145020 (Version 2)
Quarter: 2025Q2

REPORT INFORMATION
  Report Type: Spontaneous
  Country: DE (occurrence: DE)
  Receive Date: 20250401
  Receipt Date: 20250616
  Transmission Date: 20250716
  Serious: Yes (Other)
  Sender: BOEHRINGER INGELHEIM
  Company Number: DE-BoehringerIngelheim-2025-BI-018031

PATIENT
  Age: 71 Year
  Sex: Male
  Weight: 76 kg

DRUGS (9)
  1. JARDIANCE [Suspect]
     Active Substance: EMPAGLIFLOZIN
     Indication: Type 2 diabetes mellitus
     Dates: start: 202410, end: 20250310
  2. Xelevia 100 mg Filmtabletten [Concomitant]
     Indication: Product used for unknown indication
  3. Metformin Atid 1000 mg [Concomitant]
     Indication: Product used for unknown indication
  4. LERCANIDIPINE [Concomitant]
     Active Substance: LERCANIDIPINE
     Indication: Product used for unknown indication
  5. Atacand PLUS 32/12.5 mg [Concomitant]
     Indication: Product used for unknown indication
     Dosage: 32/12.5 MG
  6. Pantoprazol Aurobindo 40 mg MSR Tabletten [Concomitant]
     Indication: Product used for unknown indication
  7. Ibuflam 800 mg Retardtabletten [Concomitant]
     Indication: Product used for unknown indication
  8. Moxonidin - 1 A Pharma 0.3 mg Filmtabletten [Concomitant]
     Indication: Product used for unknown indication
  9. Bisoprolol Dexcel 2.5 mg Tabletten [Concomitant]
     Indication: Product used for unknown indication

REACTIONS (10)
  - Malaise [Recovered/Resolved]
  - Weight decreased [Recovered/Resolved]
  - Decreased appetite [Recovered/Resolved]
  - Cerebral ischaemia [Recovered/Resolved]
  - Neck pain [Recovered/Resolved]
  - Blood glucose increased [Recovered/Resolved]
  - Asthenia [Recovered/Resolved]
  - Fatigue [Recovered/Resolved]
  - Diarrhoea [Recovered/Resolved]
  - Abdominal pain upper [Recovered/Resolved]

NARRATIVE: CASE EVENT DATE: 20241201
